FAERS Safety Report 25448245 (Version 4)
Quarter: 2025Q3

REPORT INFORMATION
  Report Type: Spontaneous
  Country: US (occurrence: US)
  Receive Date: 20250617
  Receipt Date: 20250725
  Transmission Date: 20251021
  Serious: Yes (Hospitalization, Other)
  Sender: BRISTOL-MYERS SQUIBB COMPANY
  Company Number: US-BRISTOL-MYERS SQUIBB COMPANY-2025-085099

PATIENT
  Age: 58 Year
  Sex: Female
  Weight: 72.0 kg

DRUGS (9)
  1. ELIQUIS [Suspect]
     Active Substance: APIXABAN
     Indication: Deep vein thrombosis
     Route: 048
     Dates: start: 20250110, end: 20250211
  2. BRENTUXIMAB VEDOTIN [Suspect]
     Active Substance: BRENTUXIMAB VEDOTIN
     Indication: Peripheral T-cell lymphoma unspecified
     Dosage: 1.8 MG/KG CYCLIC (ON DAY 1 OF EACH CYCLE)
     Route: 042
     Dates: start: 20241101, end: 20250220
  3. CYCLOPHOSPHAMIDE [Suspect]
     Active Substance: CYCLOPHOSPHAMIDE
     Indication: Peripheral T-cell lymphoma unspecified
     Dosage: 750 MG/M2 IV, DAY 1, 1-1 CYCLICAL
     Route: 042
     Dates: start: 20241101, end: 20250130
  4. DOXORUBICIN [Suspect]
     Active Substance: DOXORUBICIN
     Indication: Peripheral T-cell lymphoma unspecified
     Dosage: 50MG/M2 IV, DAY 1,  1 CYCLE = 21 DAYS
     Route: 042
     Dates: start: 20241101, end: 20250130
  5. ETOPOSIDE [Suspect]
     Active Substance: ETOPOSIDE
     Indication: Peripheral T-cell lymphoma unspecified
     Dosage: 100 MG/M2 CYCLIC (DAY 1, 1 CYCLE = 21 DAYS), 200 MG/M2 CYCLIC (DAY 2 - DAY 3, 1 CYCLE = 21 DAYS)
     Route: 042
     Dates: start: 20241101, end: 20250130
  6. ETOPOSIDE [Suspect]
     Active Substance: ETOPOSIDE
     Route: 048
     Dates: start: 20241102, end: 20250201
  7. PREDNISONE [Suspect]
     Active Substance: PREDNISONE
     Indication: Peripheral T-cell lymphoma unspecified
     Dosage: 100 MG/DAILY, DAY 1 - DAY 5,  1 CYCLE = 21 DAYS)
     Route: 048
     Dates: start: 20241101, end: 20250203
  8. PREDNISONE [Suspect]
     Active Substance: PREDNISONE
     Route: 048
     Dates: start: 20250203
  9. NEULASTA [Concomitant]
     Active Substance: PEGFILGRASTIM
     Indication: Product used for unknown indication
     Route: 058
     Dates: start: 20250203, end: 20250203

REACTIONS (11)
  - Fatigue [Recovered/Resolved]
  - Dizziness [Unknown]
  - Hypotension [Unknown]
  - Febrile neutropenia [Recovered/Resolved]
  - Urinary retention [Unknown]
  - Thrombocytopenia [Unknown]
  - Pancytopenia [Unknown]
  - Troponin increased [Unknown]
  - Pyrexia [Unknown]
  - Oedema peripheral [Unknown]
  - Urinary tract infection [Unknown]

NARRATIVE: CASE EVENT DATE: 20250208
